FAERS Safety Report 21242560 (Version 3)
Quarter: 2022Q4

REPORT INFORMATION
  Report Type: Report from Study
  Country: JP (occurrence: JP)
  Receive Date: 20220823
  Receipt Date: 20221130
  Transmission Date: 20230112
  Serious: Yes (Hospitalization)
  Sender: FDA-Public Use
  Company Number: JP-NOVARTISPH-NVSJ2022JP095972

PATIENT
  Age: 51 Year
  Sex: Male
  Weight: 34.2 kg

DRUGS (21)
  1. ILARIS [Suspect]
     Active Substance: CANAKINUMAB
     Indication: Still^s disease
     Dosage: 135 MG
     Route: 058
     Dates: start: 20210702
  2. ILARIS [Suspect]
     Active Substance: CANAKINUMAB
     Dosage: 135 MG
     Route: 058
     Dates: start: 20210730
  3. ILARIS [Suspect]
     Active Substance: CANAKINUMAB
     Dosage: 135 MG
     Route: 058
     Dates: start: 20210904
  4. ILARIS [Suspect]
     Active Substance: CANAKINUMAB
     Dosage: 135 MG
     Route: 058
     Dates: start: 20211001
  5. ILARIS [Suspect]
     Active Substance: CANAKINUMAB
     Dosage: 135 MG
     Route: 065
     Dates: start: 20211029
  6. ILARIS [Suspect]
     Active Substance: CANAKINUMAB
     Dosage: 135 MG
     Route: 058
     Dates: start: 20211126
  7. ILARIS [Suspect]
     Active Substance: CANAKINUMAB
     Dosage: 135 MG
     Route: 058
     Dates: start: 20211224
  8. ILARIS [Suspect]
     Active Substance: CANAKINUMAB
     Dosage: 135 MG
     Route: 058
     Dates: start: 20220121
  9. ILARIS [Suspect]
     Active Substance: CANAKINUMAB
     Dosage: 135 MG
     Route: 058
     Dates: start: 20220218
  10. ILARIS [Suspect]
     Active Substance: CANAKINUMAB
     Dosage: 135 MG
     Route: 058
     Dates: start: 20220401
  11. ILARIS [Suspect]
     Active Substance: CANAKINUMAB
     Dosage: 135 MG
     Route: 058
     Dates: start: 20220603
  12. ILARIS [Suspect]
     Active Substance: CANAKINUMAB
     Dosage: 135 MG
     Route: 058
     Dates: start: 20220701
  13. PREDNISOLONE [Suspect]
     Active Substance: PREDNISOLONE
     Indication: Still^s disease
     Dosage: 20 MG
     Route: 048
     Dates: start: 20210702, end: 20210715
  14. PREDNISOLONE [Suspect]
     Active Substance: PREDNISOLONE
     Dosage: 8 MG
     Route: 048
     Dates: start: 20211112, end: 20220401
  15. PREDNISOLONE [Suspect]
     Active Substance: PREDNISOLONE
     Dosage: 6 MG
     Route: 048
     Dates: start: 20220402
  16. MEDROL [Concomitant]
     Active Substance: METHYLPREDNISOLONE
     Indication: Still^s disease
     Dosage: 16 MG
     Route: 048
     Dates: start: 20210716, end: 20210812
  17. MEDROL [Concomitant]
     Active Substance: METHYLPREDNISOLONE
     Dosage: 12 MG
     Route: 048
     Dates: start: 20210813, end: 20211014
  18. MEDROL [Concomitant]
     Active Substance: METHYLPREDNISOLONE
     Dosage: 8 MG
     Route: 048
     Dates: start: 20211015, end: 20211111
  19. SULFAMETHOXAZOLE\TRIMETHOPRIM [Concomitant]
     Active Substance: SULFAMETHOXAZOLE\TRIMETHOPRIM
     Indication: Product used for unknown indication
     Dosage: 0.5 DOSAGE FORM
     Route: 048
     Dates: start: 20220702
  20. ALENDRONATE [Concomitant]
     Active Substance: ALENDRONATE SODIUM
     Indication: Product used for unknown indication
     Dosage: 35 MG
     Route: 048
     Dates: start: 20210702
  21. LANSOPRAZOLE [Concomitant]
     Active Substance: LANSOPRAZOLE
     Indication: Product used for unknown indication
     Dosage: 15 MG
     Route: 048
     Dates: start: 20210702

REACTIONS (4)
  - Urinary tract infection pseudomonal [Recovered/Resolved]
  - Concomitant disease aggravated [Recovered/Resolved]
  - Pseudomonal bacteraemia [Recovered/Resolved]
  - Concomitant disease aggravated [Recovered/Resolved]

NARRATIVE: CASE EVENT DATE: 20220421
